FAERS Safety Report 10306479 (Version 2)
Quarter: 2014Q1

REPORT INFORMATION
  Report Type: Spontaneous
  Country: US (occurrence: None)
  Receive Date: 20120817
  Receipt Date: 20130815
  Transmission Date: 20141002
  Serious: Yes (Hospitalization, Other)
  Sender: FDA-Public Use
  Company Number: ADR-2011-11767

PATIENT
  Age: 51 Year
  Sex: Male

DRUGS (3)
  1. LIORESAL [Suspect]
     Indication: MUSCLE SPASTICITY
  2. LIORESAL [Suspect]
     Indication: SPINAL CORD INJURY
  3. LIORESAL [Suspect]
     Indication: SPINAL CORD DISORDER

REACTIONS (4)
  - Therapeutic response decreased [None]
  - Muscle tightness [None]
  - Amnesia [None]
  - Confusional state [None]
